FAERS Safety Report 5415668-0 (Version None)
Quarter: 2007Q3

REPORT INFORMATION
  Report Type: 
  Country: None (occurrence: None)
  Receive Date: 20070815
  Receipt Date: 20061218
  Transmission Date: 20080115
  Serious: No
  Sender: FDA-Public Use
  Company Number: US-BRISTOL-MYERS SQUIBB COMPANY-13617147

PATIENT

DRUGS (1)
  1. TEQUIN [Suspect]
     Dates: start: 20040101, end: 20040101

REACTIONS (1)
  - BLOOD TRIGLYCERIDES INCREASED [None]
